FAERS Safety Report 19902930 (Version 15)
Quarter: 2022Q2

REPORT INFORMATION
  Report Type: Report from Study
  Country: US (occurrence: US)
  Receive Date: 20211001
  Receipt Date: 20220527
  Transmission Date: 20220721
  Serious: Yes (Other)
  Sender: FDA-Public Use
  Company Number: NVSC2021US222296

PATIENT
  Sex: Male

DRUGS (4)
  1. ENTRESTO [Suspect]
     Active Substance: SACUBITRIL\VALSARTAN
     Indication: Product used for unknown indication
     Dosage: 50 MG, BID (24/26 MG)
     Route: 048
     Dates: start: 20210919
  2. ENTRESTO [Suspect]
     Active Substance: SACUBITRIL\VALSARTAN
     Dosage: UNK UNK, BID, (1/2 TAB AM, 1 TAB PM)
     Route: 065
  3. LASIX [Suspect]
     Active Substance: FUROSEMIDE
     Indication: Product used for unknown indication
     Dosage: UNK, UNKNOWN
     Route: 065
  4. FARXIGA [Suspect]
     Active Substance: DAPAGLIFLOZIN PROPANEDIOL
     Indication: Product used for unknown indication
     Dosage: UNK, UNKNOWN
     Route: 065

REACTIONS (20)
  - Hypotension [Unknown]
  - Vision blurred [Recovering/Resolving]
  - Ejection fraction decreased [Unknown]
  - Blood urea increased [Recovering/Resolving]
  - Weight fluctuation [Unknown]
  - Memory impairment [Unknown]
  - Feeling abnormal [Unknown]
  - Weight decreased [Unknown]
  - Dyspnoea exertional [Recovering/Resolving]
  - Balance disorder [Unknown]
  - Gait disturbance [Unknown]
  - Dyspnoea [Recovering/Resolving]
  - Dry throat [Unknown]
  - Dysphonia [Unknown]
  - Throat clearing [Unknown]
  - Asthenia [Recovering/Resolving]
  - Blood creatinine increased [Recovering/Resolving]
  - Cough [Recovering/Resolving]
  - Dizziness [Unknown]
  - Wrong technique in product usage process [Not Recovered/Not Resolved]
